FAERS Safety Report 6811841-5 (Version None)
Quarter: 2010Q3

REPORT INFORMATION
  Report Type: 
  Country: None (occurrence: None)
  Receive Date: 20100701
  Receipt Date: 20100616
  Transmission Date: 20110219
  Serious: Yes (Other)
  Sender: FDA-Public Use
  Company Number: PHHY2010US39090

PATIENT
  Sex: Female

DRUGS (1)
  1. GLEEVEC [Suspect]
     Indication: GASTROINTESTINAL CARCINOMA
     Dosage: 400 MG, DAILY
     Route: 048
     Dates: start: 20090919

REACTIONS (9)
  - ASTHENIA [None]
  - DEPRESSION [None]
  - DIZZINESS [None]
  - EYE SWELLING [None]
  - FATIGUE [None]
  - HEADACHE [None]
  - HYPOAESTHESIA [None]
  - NAUSEA [None]
  - RASH [None]
